FAERS Safety Report 6926009-1 (Version None)
Quarter: 2010Q3

REPORT INFORMATION
  Report Type: 
  Country: None (occurrence: None)
  Receive Date: 20100816
  Receipt Date: 20100812
  Transmission Date: 20110219
  Serious: Yes (Hospitalization)
  Sender: FDA-Public Use
  Company Number: US-BRISTOL-MYERS SQUIBB COMPANY-15187552

PATIENT
  Age: 66 Year
  Sex: Male
  Weight: 85 kg

DRUGS (12)
  1. CISPLATIN [Suspect]
     Indication: NON-SMALL CELL LUNG CANCER STAGE III
     Route: 042
     Dates: start: 20090928, end: 20091110
  2. PEMETREXED DISODIUM [Suspect]
     Indication: NON-SMALL CELL LUNG CANCER STAGE III
     Dosage: 28SEP09 TO 10NOV09,44DAYS.CONSOLIDATION PHASE 07DEC09 TO 20JAN10,45 DAYS
     Route: 042
     Dates: start: 20090928, end: 20100120
  3. RADIATION THERAPY [Suspect]
     Indication: NON-SMALL CELL LUNG CANCER STAGE III
     Dates: start: 20090928, end: 20091111
  4. INDOMETHACIN [Concomitant]
     Indication: GOUT
     Dates: start: 20091102
  5. EMEND [Concomitant]
     Indication: NAUSEA
     Dates: start: 20091112
  6. HYDROCODONE BITARTRATE [Concomitant]
     Indication: PAIN
     Dates: start: 20091120
  7. ZOFRAN [Concomitant]
     Indication: NAUSEA
     Dates: start: 20091112
  8. PROCHLORPERAZINE MALEATE [Concomitant]
     Indication: NAUSEA
     Dates: start: 20091112
  9. ZOLOFT [Concomitant]
     Indication: ANXIETY
     Dates: start: 20100120
  10. FOLIC ACID [Concomitant]
     Indication: SUPPLEMENTATION THERAPY
     Dates: start: 20090921
  11. VITAMIN B-12 [Concomitant]
     Indication: SUPPLEMENTATION THERAPY
     Dates: start: 20090921, end: 20100127
  12. DEXAMETHASONE [Concomitant]
     Indication: SUPPLEMENTATION THERAPY
     Dates: start: 20090921

REACTIONS (3)
  - DEHYDRATION [None]
  - DYSPNOEA [None]
  - PNEUMONIA [None]
